FAERS Safety Report 15337571 (Version 1)
Quarter: 2018Q3

REPORT INFORMATION
  Report Type: Spontaneous
  Country: US (occurrence: US)
  Receive Date: 20180831
  Receipt Date: 20180831
  Transmission Date: 20181010
  Serious: No
  Sender: FDA-Public Use
  Company Number: US-PFIZER INC-2018351978

PATIENT
  Age: 66 Year
  Sex: Male
  Weight: 100 kg

DRUGS (2)
  1. IBUPROFEN. [Concomitant]
     Active Substance: IBUPROFEN
     Indication: ARTHRITIS
     Dosage: UNK, AS NEEDED
     Dates: start: 201806
  2. LYRICA [Suspect]
     Active Substance: PREGABALIN
     Indication: ARTHRITIS
     Dosage: 50 MG, 1X/DAY
     Route: 048
     Dates: start: 201808

REACTIONS (4)
  - Musculoskeletal pain [Unknown]
  - Product use in unapproved indication [Unknown]
  - Pain [Unknown]
  - Arthralgia [Unknown]

NARRATIVE: CASE EVENT DATE: 2018
